FAERS Safety Report 9345410 (Version 1)
Quarter: 2013Q2

REPORT INFORMATION
  Report Type: Spontaneous
  Country: GB (occurrence: GB)
  Receive Date: 20130613
  Receipt Date: 20130613
  Transmission Date: 20140414
  Serious: Yes (Hospitalization)
  Sender: FDA-Public Use
  Company Number: GB-B.I. PHARMACEUTICALS,INC./RIDGEFIELD-2013-UK-01262UK

PATIENT
  Age: 4 Year
  Sex: Male
  Weight: 16.45 kg

DRUGS (1)
  1. CATAPRES [Suspect]
     Dosage: 105 MCG
     Route: 048

REACTIONS (1)
  - Hypotension [Recovered/Resolved]
